FAERS Safety Report 7635009-8 (Version None)
Quarter: 2011Q3

REPORT INFORMATION
  Report Type: 
  Country: None (occurrence: None)
  Receive Date: 20110726
  Receipt Date: 20110719
  Transmission Date: 20111222
  Serious: Yes (Death, Hospitalization, Other)
  Sender: FDA-Public Use
  Company Number: BR-US-EMD SERONO, INC.-7006477

PATIENT
  Sex: Female

DRUGS (6)
  1. ENALAPRIL MALEATE [Concomitant]
  2. CLOPIDOGREL [Concomitant]
  3. LIPITOR [Concomitant]
  4. REBIF [Suspect]
     Indication: RELAPSING-REMITTING MULTIPLE SCLEROSIS
     Route: 058
     Dates: start: 20071101, end: 20100401
  5. DEXAMETHASONE [Concomitant]
  6. HYDROCHLOROTHIAZIDE [Concomitant]

REACTIONS (4)
  - SEPSIS [None]
  - BRAIN NEOPLASM [None]
  - MULTI-ORGAN FAILURE [None]
  - IMMUNOSUPPRESSION [None]
